FAERS Safety Report 8967599 (Version 1)
Quarter: 2012Q4

REPORT INFORMATION
  Report Type: 
  Country: GB (occurrence: GB)
  Receive Date: 20121214
  Receipt Date: 20121214
  Transmission Date: 20130627
  Serious: Yes (Death, Other)
  Sender: FDA-Public Use
  Company Number: GB-PFIZER INC-2012310316

PATIENT
  Age: 28 Year
  Sex: Male

DRUGS (1)
  1. SULFASALAZINE [Suspect]
     Indication: ULCERATIVE PROCTITIS
     Dosage: 3 g, daily

REACTIONS (3)
  - Bacterial sepsis [Fatal]
  - Toxic epidermal necrolysis [Not Recovered/Not Resolved]
  - Toxicity to various agents [Not Recovered/Not Resolved]
